FAERS Safety Report 10705754 (Version 1)
Quarter: 2015Q1

REPORT INFORMATION
  Report Type: Spontaneous
  Country: GB (occurrence: GB)
  Receive Date: 20150112
  Receipt Date: 20150112
  Transmission Date: 20150721
  Serious: Yes (Other)
  Sender: FDA-Public Use
  Company Number: GB-009507513-1501GBR001173

PATIENT
  Age: 31 Year
  Sex: Female
  Weight: 54 kg

DRUGS (9)
  1. SULFAMETHOXAZOLE (+) TRIMETHOPRIM [Concomitant]
     Active Substance: SULFAMETHOXAZOLE\TRIMETHOPRIM
     Route: 065
  2. CRIXIVAN [Suspect]
     Active Substance: INDINAVIR SULFATE
     Indication: ANTIVIRAL TREATMENT
     Route: 048
     Dates: start: 19990602
  3. VIDEX [Suspect]
     Active Substance: DIDANOSINE
     Indication: ANTIVIRAL TREATMENT
     Route: 048
     Dates: start: 19990602
  4. ACYCLOVIR. [Concomitant]
     Active Substance: ACYCLOVIR
  5. LOPERAMIDE HYDROCHLORIDE. [Concomitant]
     Active Substance: LOPERAMIDE HYDROCHLORIDE
  6. NORVIR [Suspect]
     Active Substance: RITONAVIR
     Indication: ANTIVIRAL TREATMENT
     Route: 048
     Dates: end: 19990602
  7. DELAVIRDINE MESYLATE [Suspect]
     Active Substance: DELAVIRDINE MESYLATE
     Indication: ANTIVIRAL TREATMENT
     Route: 048
     Dates: start: 19990602
  8. VIRACEPT [Suspect]
     Active Substance: NELFINAVIR MESYLATE
     Indication: ANTIVIRAL TREATMENT
     Route: 048
  9. ERYTHROMYCIN. [Concomitant]
     Active Substance: ERYTHROMYCIN

REACTIONS (2)
  - Campylobacter gastroenteritis [Unknown]
  - Maternal exposure during pregnancy [Unknown]

NARRATIVE: CASE EVENT DATE: 199907
